FAERS Safety Report 19274534 (Version 3)
Quarter: 2021Q3

REPORT INFORMATION
  Report Type: Report from Study
  Country: US (occurrence: US)
  Receive Date: 20210519
  Receipt Date: 20210720
  Transmission Date: 20211014
  Serious: Yes (Hospitalization)
  Sender: FDA-Public Use
  Company Number: US-ALKERMES INC.-ALK-2021-002524

PATIENT
  Age: 50 Year
  Sex: Male

DRUGS (42)
  1. CLONIDINE. [Concomitant]
     Active Substance: CLONIDINE
     Dosage: 0.2 MILLIGRAM, QD
     Route: 065
     Dates: start: 20210319, end: 20210319
  2. CLONAZEPAM. [Concomitant]
     Active Substance: CLONAZEPAM
     Dosage: 4 MILLIGRAM, QD
     Route: 065
     Dates: start: 20210323, end: 20210323
  3. CLONAZEPAM. [Concomitant]
     Active Substance: CLONAZEPAM
     Dosage: 2 MILLIGRAM, QD
     Route: 065
     Dates: start: 20210321, end: 20210321
  4. ELAVIL [Concomitant]
     Active Substance: AMITRIPTYLINE HYDROCHLORIDE
     Indication: PRODUCT USED FOR UNKNOWN INDICATION
     Dosage: 50 MILLIGRAM
  5. NALTREXONE [Suspect]
     Active Substance: NALTREXONE
     Dosage: 6 MILLIGRAM, QD
     Route: 048
     Dates: start: 20210325, end: 20210325
  6. BUPRENORPHINE. [Suspect]
     Active Substance: BUPRENORPHINE
     Indication: DRUG USE DISORDER
     Dosage: 7 MILLIGRAM, QD
     Route: 065
     Dates: start: 20210320, end: 20210320
  7. CLONIDINE. [Concomitant]
     Active Substance: CLONIDINE
     Dosage: 0.4 MILLIGRAM, QD
     Route: 065
     Dates: start: 20210323, end: 20210323
  8. CLONIDINE. [Concomitant]
     Active Substance: CLONIDINE
     Dosage: 0.10 MILLIGRAM, QD
     Route: 065
     Dates: start: 20210318, end: 20210318
  9. PROCHLORPERAZINE. [Concomitant]
     Active Substance: PROCHLORPERAZINE
     Indication: PRODUCT USED FOR UNKNOWN INDICATION
     Dosage: 10 MILLIGRAM
  10. IBUPROFEN. [Concomitant]
     Active Substance: IBUPROFEN
     Indication: PRODUCT USED FOR UNKNOWN INDICATION
     Dosage: 600 MILLIGRAM
  11. BENTYL [Concomitant]
     Active Substance: DICYCLOMINE HYDROCHLORIDE
     Indication: PRODUCT USED FOR UNKNOWN INDICATION
     Dosage: UNK
  12. CLONIDINE. [Concomitant]
     Active Substance: CLONIDINE
     Indication: PROPHYLAXIS
     Dosage: 0.4 MILLIGRAM, QD
     Route: 065
     Dates: start: 20210326, end: 20210326
  13. CLONIDINE. [Concomitant]
     Active Substance: CLONIDINE
     Dosage: 0.4 MILLIGRAM, QD
     Route: 065
     Dates: start: 20210325, end: 20210325
  14. CLONIDINE. [Concomitant]
     Active Substance: CLONIDINE
     Dosage: 0.4 MILLIGRAM, QD
     Route: 065
     Dates: start: 20210324, end: 20210324
  15. CLONIDINE. [Concomitant]
     Active Substance: CLONIDINE
     Dosage: 0.6 MILLIGRAM, QD
     Route: 065
     Dates: start: 20210320, end: 20210320
  16. NALTREXONE [Suspect]
     Active Substance: NALTREXONE
     Indication: DRUG USE DISORDER
     Dosage: 6 MILLIGRAM, QD
     Route: 048
     Dates: start: 20210326, end: 20210326
  17. NALTREXONE [Suspect]
     Active Substance: NALTREXONE
     Dosage: 2 MILLIGRAM, QD
     Route: 048
     Dates: start: 20210324, end: 20210324
  18. CLONIDINE. [Concomitant]
     Active Substance: CLONIDINE
     Dosage: 0.2 MILLIGRAM, QD
     Route: 065
     Dates: start: 20210322, end: 20210322
  19. CLONAZEPAM. [Concomitant]
     Active Substance: CLONAZEPAM
     Dosage: 3 MILLIGRAM, QD
     Route: 065
     Dates: start: 20210325, end: 20210325
  20. CLONAZEPAM. [Concomitant]
     Active Substance: CLONAZEPAM
     Dosage: 2 MILLIGRAM, QD
     Route: 065
     Dates: start: 20210320, end: 20210320
  21. AMITRIPTYLINE [Concomitant]
     Active Substance: AMITRIPTYLINE
     Dosage: 100 MILLIGRAM
  22. NICOTINE. [Concomitant]
     Active Substance: NICOTINE
     Indication: PRODUCT USED FOR UNKNOWN INDICATION
     Dosage: 21 MILLIGRAM
  23. ZOLPIDEM [Concomitant]
     Active Substance: ZOLPIDEM TARTRATE
     Indication: PRODUCT USED FOR UNKNOWN INDICATION
     Dosage: UNK
     Route: 065
  24. COMPAZINE [Concomitant]
     Active Substance: PROCHLORPERAZINE MALEATE
     Indication: PRODUCT USED FOR UNKNOWN INDICATION
     Dosage: UNK
  25. VIVITROL [Suspect]
     Active Substance: NALTREXONE
     Indication: DRUG USE DISORDER
     Dosage: 380 MILLIGRAM, QMO
     Route: 030
     Dates: start: 20210422
  26. CLONIDINE. [Concomitant]
     Active Substance: CLONIDINE
     Dosage: 0.2 MILLIGRAM, QD
     Route: 065
     Dates: start: 20210321, end: 20210321
  27. COVID?19 VACCINE [Concomitant]
     Indication: COVID-19 PROPHYLAXIS
     Dosage: UNK, ONE TIME DOSE
  28. NALTREXONE [Suspect]
     Active Substance: NALTREXONE
     Dosage: 0.50 MILLIGRAM, QD
     Route: 048
     Dates: start: 20210323, end: 20210323
  29. CLONAZEPAM. [Concomitant]
     Active Substance: CLONAZEPAM
     Dosage: 3 MILLIGRAM, QD
     Route: 065
     Dates: start: 20210322, end: 20210322
  30. GABAPENTIN. [Concomitant]
     Active Substance: GABAPENTIN
     Indication: PRODUCT USED FOR UNKNOWN INDICATION
     Dosage: 100 MILLIGRAM
  31. BUSPIRONE [Concomitant]
     Active Substance: BUSPIRONE HYDROCHLORIDE
     Indication: PRODUCT USED FOR UNKNOWN INDICATION
     Dosage: 10 MILLIGRAM
  32. VIVITROL [Suspect]
     Active Substance: NALTREXONE
     Dosage: 380 MILLIGRAM, QMO
     Route: 030
     Dates: start: 20210326, end: 20210326
  33. CLONAZEPAM. [Concomitant]
     Active Substance: CLONAZEPAM
     Dosage: 1 MILLIGRAM, QD
     Route: 065
     Dates: start: 20210324, end: 20210324
  34. LOPERAMIDE [Concomitant]
     Active Substance: LOPERAMIDE
     Indication: PRODUCT USED FOR UNKNOWN INDICATION
     Dosage: 4 MILLIGRAM
  35. AMITRIPTYLINE [Concomitant]
     Active Substance: AMITRIPTYLINE
     Indication: PRODUCT USED FOR UNKNOWN INDICATION
     Dosage: 50 MILLIGRAM
  36. MELATONIN [Concomitant]
     Active Substance: MELATONIN
     Indication: PRODUCT USED FOR UNKNOWN INDICATION
     Dosage: 5 MILLIGRAM
  37. BACLOFEN. [Concomitant]
     Active Substance: BACLOFEN
     Indication: PRODUCT USED FOR UNKNOWN INDICATION
     Dosage: UNK
  38. CLONAZEPAM. [Concomitant]
     Active Substance: CLONAZEPAM
     Indication: PROPHYLAXIS
     Dosage: 2 MILLIGRAM, QD
     Route: 065
     Dates: start: 20210326, end: 20210326
  39. MAALOX ANTACID [Concomitant]
     Active Substance: ALUMINUM HYDROXIDE\DIMETHICONE\MAGNESIUM HYDROXIDE
     Indication: PRODUCT USED FOR UNKNOWN INDICATION
     Dosage: 30 MILLILITER
  40. TUMS [Concomitant]
     Active Substance: CALCIUM CARBONATE
     Indication: PRODUCT USED FOR UNKNOWN INDICATION
  41. TRAZODONE [Concomitant]
     Active Substance: TRAZODONE HYDROCHLORIDE
     Indication: PRODUCT USED FOR UNKNOWN INDICATION
     Dosage: UNK
     Route: 065
  42. VISTARIL [Concomitant]
     Active Substance: HYDROXYZINE PAMOATE
     Indication: PRODUCT USED FOR UNKNOWN INDICATION
     Dosage: UNK

REACTIONS (1)
  - Injury [Recovered/Resolved]

NARRATIVE: CASE EVENT DATE: 20210512
